FAERS Safety Report 12983771 (Version 1)
Quarter: 2016Q4

REPORT INFORMATION
  Report Type: Spontaneous
  Country: IN (occurrence: IN)
  Receive Date: 20161129
  Receipt Date: 20161129
  Transmission Date: 20170207
  Serious: Yes (Other)
  Sender: FDA-Public Use
  Company Number: IN-VALIDUS PHARMACEUTICALS LLC-IN-2016VAL003021

PATIENT
  Age: 40 Year
  Sex: Female

DRUGS (1)
  1. CARBAMAZEPINE. [Suspect]
     Active Substance: CARBAMAZEPINE
     Indication: EPILEPSY
     Dosage: UNK
     Route: 065

REACTIONS (5)
  - Bone marrow failure [Unknown]
  - Subdural haematoma [Unknown]
  - Pancytopenia [Unknown]
  - Loss of consciousness [Unknown]
  - Coma scale abnormal [Recovering/Resolving]
